FAERS Safety Report 9870584 (Version 1)
Quarter: 2014Q1

REPORT INFORMATION
  Report Type: Spontaneous
  Country: US (occurrence: None)
  Receive Date: 20140204
  Receipt Date: 20140204
  Transmission Date: 20141002
  Serious: Yes (Disabling)
  Sender: FDA-Public Use
  Company Number: None

PATIENT
  Age: 74 Year
  Sex: Male
  Weight: 74.84 kg

DRUGS (1)
  1. CIPROFLOXACIN 400MG/200ML [Suspect]
     Indication: BRONCHITIS
     Dosage: 3 INTRAVENOUS DOSES
     Route: 042
     Dates: start: 20131011, end: 20131012

REACTIONS (2)
  - Arthralgia [None]
  - Gait disturbance [None]
